FAERS Safety Report 14122059 (Version 1)
Quarter: 2017Q4

REPORT INFORMATION
  Report Type: Spontaneous
  Country: US (occurrence: US)
  Receive Date: 20171024
  Receipt Date: 20171024
  Transmission Date: 20180321
  Serious: Yes (Other)
  Sender: FDA-Public Use
  Company Number: US-ENDO PHARMACEUTICALS INC-2017-005702

PATIENT
  Sex: Male

DRUGS (1)
  1. XIAFLEX [Suspect]
     Active Substance: COLLAGENASE CLOSTRIDIUM HISTOLYTICUM
     Indication: PEYRONIE^S DISEASE
     Dosage: UNK, UNK, SINGLE
     Route: 026
     Dates: start: 201710

REACTIONS (2)
  - Fracture of penis [Not Recovered/Not Resolved]
  - Penile haematoma [Not Recovered/Not Resolved]

NARRATIVE: CASE EVENT DATE: 201710
